FAERS Safety Report 8540370-6 (Version None)
Quarter: 2012Q3

REPORT INFORMATION
  Report Type: 
  Country: None (occurrence: None)
  Receive Date: 20120726
  Receipt Date: 20110802
  Transmission Date: 20120928
  Serious: No
  Sender: FDA-Public Use
  Company Number: US-ASTRAZENECA-2010SE48336

PATIENT
  Age: 58 Year
  Sex: Female
  Weight: 104.3 kg

DRUGS (7)
  1. SEROQUEL [Suspect]
     Indication: SLEEP DISORDER
     Route: 048
     Dates: start: 20090901
  2. LISINOPRIL [Concomitant]
     Indication: HYPERTENSION
  3. GLIMEPIRIDE [Concomitant]
     Indication: DIABETES MELLITUS
  4. METFORMIN HYDROCHLORIDE [Concomitant]
     Indication: DIABETES MELLITUS
  5. SEROQUEL [Suspect]
     Route: 048
  6. TRIAMTERENE AND HYDROCHLOROTHIAZIDE [Concomitant]
     Indication: HYPERTENSION
  7. CARVEDOLOL [Concomitant]
     Indication: HYPERTENSION

REACTIONS (6)
  - UPPER RESPIRATORY TRACT INFECTION [None]
  - INSOMNIA [None]
  - DRUG DOSE OMISSION [None]
  - COUGH [None]
  - LARYNGITIS [None]
  - NASOPHARYNGITIS [None]
